FAERS Safety Report 10019028 (Version 3)
Quarter: 2014Q2

REPORT INFORMATION
  Report Type: Spontaneous
  Country: US (occurrence: US)
  Receive Date: 20140318
  Receipt Date: 20140625
  Transmission Date: 20141212
  Serious: Yes (Hospitalization, Other)
  Sender: FDA-Public Use
  Company Number: US-BAYER-2014-040307

PATIENT
  Age: 30 Year
  Sex: Female
  Weight: 64.85 kg

DRUGS (3)
  1. MIRENA [Suspect]
     Indication: CONTRACEPTION
     Dosage: 20 MCG/24HR, CONT
     Route: 015
     Dates: start: 20120326, end: 20130114
  2. ABILIFY [Concomitant]
     Indication: BIPOLAR DISORDER
     Dosage: UNK
     Dates: start: 200901, end: 201203
  3. AMITRIPTYLINE [Concomitant]
     Indication: BIPOLAR DISORDER
     Dosage: UNK
     Dates: start: 200901, end: 201203

REACTIONS (8)
  - Uterine perforation [None]
  - Genital haemorrhage [None]
  - Injury [None]
  - Abdominal pain [None]
  - Depression [None]
  - Device dislocation [None]
  - Device issue [None]
  - Device breakage [None]
